FAERS Safety Report 9723126 (Version 1)
Quarter: 2013Q4

REPORT INFORMATION
  Report Type: Spontaneous
  Country: US (occurrence: None)
  Receive Date: 20131127
  Receipt Date: 20131127
  Transmission Date: 20140711
  Serious: Yes (Other)
  Sender: FDA-Public Use
  Company Number: None

PATIENT
  Age: 66 Year
  Sex: Male
  Weight: 29.5 kg

DRUGS (1)
  1. IODINE [Suspect]
     Dates: start: 20130910, end: 20130910

REACTIONS (1)
  - Anaphylactic reaction [None]
